FAERS Safety Report 25618039 (Version 1)
Quarter: 2025Q3

REPORT INFORMATION
  Report Type: Spontaneous
  Country: GB (occurrence: GB)
  Receive Date: 20250729
  Receipt Date: 20250729
  Transmission Date: 20251021
  Serious: Yes (Other)
  Sender: ELI LILLY AND COMPANY
  Company Number: GB-MHRA-TPP5451166C19033848YC1752770689269

PATIENT
  Age: 41 Year
  Sex: Male
  Weight: 111 kg

DRUGS (7)
  1. MOUNJARO [Suspect]
     Active Substance: TIRZEPATIDE
     Indication: Diabetes mellitus
     Dosage: UNK UNK, WEEKLY (1/W)
     Route: 065
     Dates: start: 20250702
  2. FLUOXETINE [Concomitant]
     Active Substance: FLUOXETINE HYDROCHLORIDE
     Indication: Product used for unknown indication
     Dosage: 1 DOSAGE FORM, DAILY
     Dates: start: 20250619
  3. FOLIC ACID [Concomitant]
     Active Substance: FOLIC ACID
     Indication: Product used for unknown indication
     Dosage: ONE TO BE TAKEN DAILY EXCEPT ON THE DAY METHOTR
     Dates: start: 20250109
  4. METHOTREXATE [Concomitant]
     Active Substance: METHOTREXATE
     Indication: Product used for unknown indication
     Dosage: 25MG WEEKLY ON THURSDAY
     Dates: start: 20250109
  5. ZEROBASE [PARAFFIN NOS] [Concomitant]
     Indication: Product used for unknown indication
     Dates: start: 20250109
  6. METFORMIN [Concomitant]
     Active Substance: METFORMIN HYDROCHLORIDE
     Indication: Product used for unknown indication
     Dosage: TAKE TWO TABLETS TWICE DAILY WITH FOOD
     Dates: start: 20250404
  7. TERBINAFINE [Concomitant]
     Active Substance: TERBINAFINE
     Indication: Product used for unknown indication
     Dosage: 1 DOSAGE FORM, DAILY
     Dates: start: 20250408

REACTIONS (3)
  - Gastrointestinal disorder [Unknown]
  - Pancreatitis acute [Unknown]
  - Abdominal pain upper [Unknown]
